FAERS Safety Report 5441757-0 (Version None)
Quarter: 2007Q3

REPORT INFORMATION
  Report Type: 
  Country: None (occurrence: None)
  Receive Date: 20070829
  Receipt Date: 20070829
  Transmission Date: 20080115
  Serious: Yes (Hospitalization)
  Sender: FDA-Public Use
  Company Number: None

PATIENT
  Sex: Male
  Weight: 66 kg

DRUGS (2)
  1. OXALIPLATIN [Suspect]
     Indication: PROSTATE CANCER
     Dosage: 70 MG/M^2 Q 21 DAYS IV
     Route: 042
     Dates: start: 20070522
  2. PEMETREXED [Suspect]
     Indication: PROSTATE CANCER
     Dosage: 280 MG/M^2 Q 21 DAYS IV
     Route: 042
     Dates: start: 20070522

REACTIONS (4)
  - ASTHENIA [None]
  - CHILLS [None]
  - FEBRILE NEUTROPENIA [None]
  - WHITE BLOOD CELL COUNT DECREASED [None]
